FAERS Safety Report 7013926-X (Version None)
Quarter: 2010Q3

REPORT INFORMATION
  Report Type: 
  Country: None (occurrence: None)
  Receive Date: 20100924
  Receipt Date: 20100914
  Transmission Date: 20110219
  Serious: Yes (Hospitalization)
  Sender: FDA-Public Use
  Company Number: FR-GILEAD-2010-0031807

PATIENT
  Age: 23 Year
  Sex: Female

DRUGS (2)
  1. TRUVADA [Suspect]
     Indication: PROPHYLAXIS AGAINST HIV INFECTION
     Dates: start: 20100913
  2. KALETRA [Concomitant]
     Dates: start: 20100913

REACTIONS (3)
  - DIARRHOEA [None]
  - OVERDOSE [None]
  - VOMITING [None]
